FAERS Safety Report 8000450-0 (Version None)
Quarter: 2011Q4

REPORT INFORMATION
  Report Type: 
  Country: None (occurrence: None)
  Receive Date: 20111222
  Receipt Date: 20110713
  Transmission Date: 20120403
  Serious: No
  Sender: FDA-Public Use
  Company Number: US-BRISTOL-MYERS SQUIBB COMPANY-15899446

PATIENT
  Age: 83 Year
  Sex: Female

DRUGS (1)
  1. PRAVACHOL [Suspect]
     Indication: MYOCARDIAL INFARCTION

REACTIONS (1)
  - MUSCULAR WEAKNESS [None]
